FAERS Safety Report 21031718 (Version 1)
Quarter: 2022Q3

REPORT INFORMATION
  Report Type: Other
  Country: US (occurrence: None)
  Receive Date: 20220701
  Receipt Date: 20220701
  Transmission Date: 20221027
  Serious: No
  Sender: FDA-Public Use
  Company Number: US-ROCHE-2942058

PATIENT
  Age: 48 Year
  Sex: Male

DRUGS (5)
  1. TOCILIZUMAB [Suspect]
     Active Substance: TOCILIZUMAB
     Indication: COVID-19
     Route: 065
  2. TOCILIZUMAB [Suspect]
     Active Substance: TOCILIZUMAB
     Indication: Acute respiratory distress syndrome
  3. DOXYCYCLINE [Concomitant]
     Active Substance: DOXYCYCLINE
  4. REMDESIVIR [Concomitant]
     Active Substance: REMDESIVIR
  5. DEXAMETHASONE [Concomitant]
     Active Substance: DEXAMETHASONE

REACTIONS (2)
  - Off label use [Unknown]
  - No adverse event [Unknown]
